FAERS Safety Report 6102730-2 (Version None)
Quarter: 2009Q1

REPORT INFORMATION
  Report Type: 
  Country: None (occurrence: None)
  Receive Date: 20090227
  Receipt Date: 20090218
  Transmission Date: 20090719
  Serious: Yes (Other)
  Sender: FDA-Public Use
  Company Number: 6049170

PATIENT
  Age: 83 Year
  Sex: Male

DRUGS (5)
  1. BISOPRODOL FUMARATE [Suspect]
     Indication: ARRHYTHMIA
     Dosage: 5 MG (5 MG), 3.75 MG (3.75 MG) ONGOING SINCE 3 WEEKS
     Dates: start: 20061201
  2. BISOPRODOL FUMARATE [Suspect]
     Indication: ARRHYTHMIA
     Dosage: 5 MG (5 MG), 3.75 MG (3.75 MG) ONGOING SINCE 3 WEEKS
     Dates: start: 20090101
  3. PROPAFENONE HCL [Concomitant]
  4. VITAMIN A POS (EYE OINTMENT) (RETINOL) [Concomitant]
  5. BEPANTHEN (EYE OINTMENT) (DEXPANTHENOL) [Concomitant]

REACTIONS (2)
  - CATARACT [None]
  - VISION BLURRED [None]
